FAERS Safety Report 5717744-1 (Version None)
Quarter: 2008Q2

REPORT INFORMATION
  Report Type: 
  Country: None (occurrence: None)
  Receive Date: 20080425
  Receipt Date: 20080422
  Transmission Date: 20081010
  Serious: Yes (Life-Threatening, Hospitalization)
  Sender: FDA-Public Use
  Company Number: FR-ASTRAZENECA-2008CG00619

PATIENT
  Age: 35 Year
  Sex: Male

DRUGS (3)
  1. DIPRIVAN [Suspect]
     Indication: GENERAL ANAESTHESIA
     Route: 042
     Dates: start: 20080321, end: 20080321
  2. NIMBEX [Suspect]
     Indication: GENERAL ANAESTHESIA
     Dates: start: 20080321, end: 20080321
  3. SUFENTANIL CITRATE [Suspect]
     Indication: GENERAL ANAESTHESIA
     Route: 042
     Dates: start: 20080321, end: 20080321

REACTIONS (1)
  - ANAPHYLACTIC SHOCK [None]
